FAERS Safety Report 4814857-3 (Version None)
Quarter: 2005Q4

REPORT INFORMATION
  Report Type: 
  Country: None (occurrence: None)
  Receive Date: 20051028
  Receipt Date: 20050701
  Transmission Date: 20060501
  Serious: Yes (Hospitalization)
  Sender: FDA-Public Use
  Company Number: DE-ROCHE-409685

PATIENT
  Age: 56 Year
  Sex: Female

DRUGS (4)
  1. CAPECITABINE [Suspect]
     Indication: BREAST CANCER
     Dosage: GIVEN FROM DAYS ONE TWO FOURTEEN WITH ONE WEEK REST.
     Route: 048
     Dates: start: 20050419
  2. CAPECITABINE [Suspect]
     Route: 048
     Dates: start: 20050510, end: 20050524
  3. CAPECITABINE [Suspect]
     Dosage: DOSE WAS REDUCED.
     Route: 048
  4. ZOMETA [Concomitant]
     Dates: start: 20050418, end: 20050510

REACTIONS (3)
  - ACUTE RESPIRATORY DISTRESS SYNDROME [None]
  - PNEUMONITIS [None]
  - PULMONARY EMBOLISM [None]
